FAERS Safety Report 20612697 (Version 12)
Quarter: 2023Q1

REPORT INFORMATION
  Report Type: Report from Study
  Country: CN (occurrence: None)
  Receive Date: 20220318
  Receipt Date: 20230329
  Transmission Date: 20230417
  Serious: Yes (Life-Threatening, Hospitalization)
  Sender: FDA-Public Use
  Company Number: CN-ROCHE-2852046

PATIENT
  Age: 58 Year
  Sex: Male
  Weight: 45 kg

DRUGS (101)
  1. ATEZOLIZUMAB [Suspect]
     Active Substance: ATEZOLIZUMAB
     Indication: Oesophageal squamous cell carcinoma recurrent
     Dosage: START DATE OF MOST RECENT DOSE OF STUDY DRUG PRIOR TO AE 03-JUN-2021
     Route: 041
     Dates: start: 20210603
  2. TIRAGOLUMAB [Suspect]
     Active Substance: TIRAGOLUMAB
     Indication: Oesophageal squamous cell carcinoma recurrent
     Dosage: START DATE OF MOST RECENT DOSE OF STUDY DRUG PRIOR TO AE 03-JUN-2021
     Route: 042
     Dates: start: 20210603
  3. PACLITAXEL [Suspect]
     Active Substance: PACLITAXEL
     Indication: Oesophageal squamous cell carcinoma recurrent
     Dosage: START DATE OF MOST RECENT DOSE OF STUDY DRUG PRIOR TO AE AND SAE ON 03/JUN/2021 AND DOSE LAST STUDY
     Route: 042
     Dates: start: 20210603
  4. CISPLATIN [Suspect]
     Active Substance: CISPLATIN
     Indication: Oesophageal squamous cell carcinoma recurrent
     Dosage: START DATE OF MOST RECENT DOSE OF STUDY DRUG PRIOR TO AE AND SAE ON 03/JUN/2021 AND DOSE LAST STUDY
     Route: 042
     Dates: start: 20210603
  5. METOPROLOL TARTRATE [Concomitant]
     Active Substance: METOPROLOL TARTRATE
     Indication: Heart rate decreased
     Dates: start: 20210809
  6. METOPROLOL TARTRATE [Concomitant]
     Active Substance: METOPROLOL TARTRATE
     Dates: start: 20210711, end: 20210711
  7. ESOMEPRAZOLE SODIUM [Concomitant]
     Active Substance: ESOMEPRAZOLE SODIUM
     Indication: Gastrooesophageal reflux disease
     Dates: start: 20210522, end: 20210531
  8. ESOMEPRAZOLE SODIUM [Concomitant]
     Active Substance: ESOMEPRAZOLE SODIUM
     Dates: start: 20210616, end: 20210624
  9. ESOMEPRAZOLE SODIUM [Concomitant]
     Active Substance: ESOMEPRAZOLE SODIUM
     Dates: start: 20210717, end: 20210723
  10. ESOMEPRAZOLE SODIUM [Concomitant]
     Active Substance: ESOMEPRAZOLE SODIUM
     Dates: start: 20210702, end: 20210709
  11. ESOMEPRAZOLE SODIUM [Concomitant]
     Active Substance: ESOMEPRAZOLE SODIUM
     Dates: start: 20210616, end: 20210724
  12. ESOMEPRAZOLE SODIUM [Concomitant]
     Active Substance: ESOMEPRAZOLE SODIUM
     Route: 011
     Dates: start: 20210722, end: 20210722
  13. STRUCTURAL FAT EMULSION INJECTION (C6-24) [Concomitant]
     Indication: Parenteral nutrition
     Dates: start: 20210524, end: 20210605
  14. POTASSIUM CHLORIDE [Concomitant]
     Active Substance: POTASSIUM CHLORIDE
     Indication: Parenteral nutrition
     Dates: start: 20210524, end: 20210605
  15. POTASSIUM CHLORIDE [Concomitant]
     Active Substance: POTASSIUM CHLORIDE
     Dates: start: 20210603, end: 20210605
  16. INSULIN NOS [Concomitant]
     Active Substance: INSULIN NOS
     Indication: Parenteral nutrition
     Dates: start: 20210524, end: 20210605
  17. INSULIN NOS [Concomitant]
     Active Substance: INSULIN NOS
     Dates: start: 20210616, end: 20210616
  18. INSULIN NOS [Concomitant]
     Active Substance: INSULIN NOS
     Dates: start: 20210702, end: 20210808
  19. MOSAPRIDE CITRATE [Concomitant]
     Active Substance: MOSAPRIDE CITRATE
     Dates: start: 20210525, end: 20210528
  20. MOSAPRIDE CITRATE [Concomitant]
     Active Substance: MOSAPRIDE CITRATE
     Route: 048
     Dates: start: 20210605, end: 20210605
  21. MEGESTROL ACETATE [Concomitant]
     Active Substance: MEGESTROL ACETATE
     Indication: Decreased appetite
     Dates: start: 20210602, end: 20210605
  22. MEGESTROL ACETATE [Concomitant]
     Active Substance: MEGESTROL ACETATE
     Route: 048
     Dates: start: 20210605, end: 20210605
  23. ONDANSETRON HYDROCHLORIDE [Concomitant]
     Active Substance: ONDANSETRON HYDROCHLORIDE
     Dates: start: 20210603, end: 20210605
  24. CODEINE PHOSPHATE;IBUPROFEN [Concomitant]
     Indication: Periarthritis
     Dates: start: 20210524, end: 20210524
  25. GLYCERIN [Concomitant]
     Active Substance: GLYCERIN
     Indication: Constipation
     Dates: start: 20210527, end: 20210528
  26. GLYCERIN [Concomitant]
     Active Substance: GLYCERIN
     Dates: start: 20210603, end: 20210604
  27. GLYCERIN [Concomitant]
     Active Substance: GLYCERIN
     Dates: start: 20210617
  28. GLYCERIN [Concomitant]
     Active Substance: GLYCERIN
     Dates: start: 20210527, end: 20210528
  29. DIPHENHYDRAMINE HYDROCHLORIDE [Concomitant]
     Active Substance: DIPHENHYDRAMINE HYDROCHLORIDE
     Indication: Syncope
     Dates: start: 20210603, end: 20210603
  30. DIPHENHYDRAMINE HYDROCHLORIDE [Concomitant]
     Active Substance: DIPHENHYDRAMINE HYDROCHLORIDE
     Route: 030
     Dates: start: 20210809, end: 20210809
  31. MOTIDINE [Concomitant]
     Dates: start: 20210603, end: 20210603
  32. DEXTROSE\SODIUM CHLORIDE [Concomitant]
     Active Substance: DEXTROSE\SODIUM CHLORIDE
     Dates: start: 20210603, end: 20210605
  33. DEXTROSE [Concomitant]
     Active Substance: DEXTROSE
     Indication: Parenteral nutrition
     Dates: start: 20210524, end: 20210605
  34. LACTULOSE [Concomitant]
     Active Substance: LACTULOSE
     Indication: Constipation
     Route: 048
     Dates: start: 20210605, end: 20210605
  35. FOSAPREPITANT DIMEGLUMINE [Concomitant]
     Active Substance: FOSAPREPITANT DIMEGLUMINE
     Dates: start: 20210603, end: 20210603
  36. TROPISETRON [Concomitant]
     Active Substance: TROPISETRON
     Dates: start: 20210603, end: 20210603
  37. DEXTROSE [Concomitant]
     Active Substance: DEXTROSE
     Dates: start: 20210616, end: 20210624
  38. DEXTROSE [Concomitant]
     Active Substance: DEXTROSE
     Dates: start: 20210702, end: 20210808
  39. DEXTROSE [Concomitant]
     Active Substance: DEXTROSE
     Dates: start: 20210630, end: 20210630
  40. POTASSIUM CHLORIDE [Concomitant]
     Active Substance: POTASSIUM CHLORIDE
     Dates: start: 20210616, end: 20210616
  41. POTASSIUM CHLORIDE [Concomitant]
     Active Substance: POTASSIUM CHLORIDE
     Dates: start: 20210702, end: 20210808
  42. POTASSIUM CHLORIDE [Concomitant]
     Active Substance: POTASSIUM CHLORIDE
     Dates: start: 20210524, end: 20210605
  43. SODIUM CHLORIDE [Concomitant]
     Active Substance: SODIUM CHLORIDE
     Dates: start: 20210616, end: 20210617
  44. SODIUM CHLORIDE [Concomitant]
     Active Substance: SODIUM CHLORIDE
     Dates: start: 20210702, end: 20210808
  45. GLUTATHIONE [Concomitant]
     Active Substance: GLUTATHIONE
     Dates: start: 20210616, end: 20210701
  46. GLUTATHIONE [Concomitant]
     Active Substance: GLUTATHIONE
     Route: 042
     Dates: start: 20210716, end: 20210810
  47. GLUTATHIONE [Concomitant]
     Active Substance: GLUTATHIONE
     Dates: start: 20210729, end: 20210810
  48. GLUTATHIONE [Concomitant]
     Active Substance: GLUTATHIONE
     Dates: start: 20210717, end: 20210728
  49. PIPERACILLIN SODIUM\TAZOBACTAM SODIUM [Concomitant]
     Active Substance: PIPERACILLIN SODIUM\TAZOBACTAM SODIUM
     Route: 042
     Dates: start: 20210616, end: 20210617
  50. PIPERACILLIN SODIUM\TAZOBACTAM SODIUM [Concomitant]
     Active Substance: PIPERACILLIN SODIUM\TAZOBACTAM SODIUM
     Route: 042
     Dates: start: 20210714, end: 20210803
  51. AMBROXOL HYDROCHLORIDE;SODIUM CHLORIDE [Concomitant]
     Indication: Productive cough
     Route: 042
     Dates: start: 20210616, end: 20210624
  52. AMBROXOL HYDROCHLORIDE;SODIUM CHLORIDE [Concomitant]
     Route: 042
     Dates: start: 20210624, end: 20210808
  53. ACETYLCYSTEINE [Concomitant]
     Active Substance: ACETYLCYSTEINE
     Indication: Productive cough
     Route: 055
     Dates: start: 20210616, end: 20210627
  54. IMIPENEM AND CILASTATIN [Concomitant]
     Active Substance: CILASTATIN SODIUM\IMIPENEM
     Route: 042
     Dates: start: 20210617, end: 20210701
  55. IMIPENEM AND CILASTATIN [Concomitant]
     Active Substance: CILASTATIN SODIUM\IMIPENEM
     Route: 042
     Dates: start: 20210803, end: 20210809
  56. DOXOFYLLINE;GLUCOSE [Concomitant]
     Indication: Productive cough
     Route: 042
     Dates: start: 20210618, end: 20210630
  57. INOSINE [Concomitant]
     Active Substance: INOSINE
     Dates: start: 20210624, end: 20210810
  58. CARBAZOCHROME SODIUM SULFONATE;SODIUM CHLORIDE [Concomitant]
     Indication: Haemostasis
     Route: 042
     Dates: start: 20210628, end: 20210706
  59. CARBAZOCHROME SODIUM SULFONATE;SODIUM CHLORIDE [Concomitant]
     Route: 042
     Dates: start: 20210710, end: 20210710
  60. CEFOPERAZONE SODIUM\SULBACTAM SODIUM [Concomitant]
     Active Substance: CEFOPERAZONE SODIUM\SULBACTAM SODIUM
     Route: 042
     Dates: start: 20210701, end: 20210729
  61. CEFOPERAZONE SODIUM\SULBACTAM SODIUM [Concomitant]
     Active Substance: CEFOPERAZONE SODIUM\SULBACTAM SODIUM
     Route: 042
     Dates: start: 20210810, end: 20210810
  62. FAMOTIDINE [Concomitant]
     Active Substance: FAMOTIDINE
     Dates: start: 20210709, end: 20210716
  63. FAMOTIDINE [Concomitant]
     Active Substance: FAMOTIDINE
     Dates: start: 20210630, end: 20210630
  64. METOCLOPRAMIDE DIHYDROCHLORIDE [Concomitant]
     Indication: Vomiting
     Dates: start: 20210717, end: 20210810
  65. METOCLOPRAMIDE DIHYDROCHLORIDE [Concomitant]
     Dates: start: 20210630, end: 20210630
  66. METOCLOPRAMIDE DIHYDROCHLORIDE [Concomitant]
     Route: 030
     Dates: start: 20210809, end: 20210809
  67. OMEPRAZOLE SODIUM [Concomitant]
     Active Substance: OMEPRAZOLE SODIUM
     Dates: start: 20210724, end: 20210810
  68. CEFMETAZOLE SODIUM [Concomitant]
     Active Substance: CEFMETAZOLE SODIUM
     Route: 042
     Dates: start: 20210728, end: 20210729
  69. DIGOXIN [Concomitant]
     Active Substance: DIGOXIN
     Indication: Cardiac failure
     Route: 048
     Dates: start: 20210805
  70. MONTMORILLONITE [Concomitant]
     Active Substance: MONTMORILLONITE
     Dates: start: 20210702
  71. BUCINNAZINE HYDROCHLORIDE [Concomitant]
     Dates: start: 20210710, end: 20210710
  72. CARBOCYSTEINE [Concomitant]
     Active Substance: CARBOCYSTEINE
     Route: 045
     Dates: start: 20210709, end: 20210719
  73. AMIODARONE HYDROCHLORIDE [Concomitant]
     Active Substance: AMIODARONE HYDROCHLORIDE
     Dates: start: 20210711, end: 20210711
  74. LENAMPICILLIN [Concomitant]
     Route: 030
     Dates: start: 20210711, end: 20210711
  75. CEFDINIR [Concomitant]
     Active Substance: CEFDINIR
     Route: 048
     Dates: start: 20210719
  76. AMBROXOL HYDROCHLORIDE [Concomitant]
     Active Substance: AMBROXOL HYDROCHLORIDE
     Route: 048
     Dates: start: 20210719
  77. COMPOUND GLYCYRRHIZIN (UNK INGREDIENTS) [Concomitant]
     Dosage: DOSE: 3 TABLET
     Route: 048
     Dates: start: 20210719
  78. COMPOUND GLYCYRRHIZIN (UNK INGREDIENTS) [Concomitant]
     Dates: start: 20210810, end: 20210810
  79. MOSAPRIDE CITRATE [Concomitant]
     Active Substance: MOSAPRIDE CITRATE
     Dates: start: 20210719
  80. SOMATOSTATIN [Concomitant]
     Active Substance: SOMATOSTATIN
     Dates: start: 20210722, end: 20210808
  81. ESTAZOLAM [Concomitant]
     Active Substance: ESTAZOLAM
     Dates: start: 20210801
  82. ESTAZOLAM [Concomitant]
     Active Substance: ESTAZOLAM
     Dates: start: 20210522, end: 20210522
  83. DEXAMETHASONE SODIUM PHOSPHATE [Concomitant]
     Active Substance: DEXAMETHASONE SODIUM PHOSPHATE
     Route: 042
     Dates: start: 20210801, end: 20210802
  84. DEXAMETHASONE SODIUM PHOSPHATE [Concomitant]
     Active Substance: DEXAMETHASONE SODIUM PHOSPHATE
     Route: 042
     Dates: start: 20210603, end: 20210603
  85. DESLANOSIDE [Concomitant]
     Active Substance: DESLANOSIDE
     Dates: start: 20210804, end: 20210809
  86. MEDROXYPROGESTERONE ACETATE [Concomitant]
     Active Substance: MEDROXYPROGESTERONE ACETATE
     Dates: start: 20210810
  87. CEFDINIR [Concomitant]
     Active Substance: CEFDINIR
     Dates: start: 20210810, end: 20210816
  88. LOXOPROFEN [Concomitant]
     Active Substance: LOXOPROFEN
     Route: 048
     Dates: start: 20210810
  89. ACETAMINOPHEN\OXYCODONE HYDROCHLORIDE [Concomitant]
     Active Substance: ACETAMINOPHEN\OXYCODONE HYDROCHLORIDE
     Route: 048
  90. AGKISTRODON VIPER HEMAGGLUTINASE [Concomitant]
     Indication: Haemostasis
     Route: 042
     Dates: start: 20210710, end: 20210710
  91. AGKISTRODON VIPER HEMAGGLUTINASE [Concomitant]
     Dosage: DOSE: 2 OTHER
     Route: 042
     Dates: start: 20210628, end: 20210630
  92. GEMCITABINE [Concomitant]
     Active Substance: GEMCITABINE
     Dates: start: 20210907, end: 20210914
  93. HUANGQIN [Concomitant]
  94. CAMRELIZUMAB [Concomitant]
     Active Substance: CAMRELIZUMAB
     Dates: start: 20210907, end: 20210914
  95. IODINOL [Concomitant]
     Dosage: GIVEN FOR PROPHYLAXIS YES
     Dates: start: 20210726, end: 20210726
  96. BICYCLOL [Concomitant]
     Active Substance: BICYCLOL
  97. LYSINE ACETYLSALICYLATE [Concomitant]
     Active Substance: ASPIRIN DL-LYSINE
     Indication: Pneumonia
     Route: 042
     Dates: start: 20210615, end: 20210616
  98. LYSINE ACETYLSALICYLATE [Concomitant]
     Active Substance: ASPIRIN DL-LYSINE
     Route: 042
     Dates: start: 20210618, end: 20210618
  99. LYSINE ACETYLSALICYLATE [Concomitant]
     Active Substance: ASPIRIN DL-LYSINE
     Route: 042
     Dates: start: 20210630, end: 20210630
  100. LYSINE ACETYLSALICYLATE [Concomitant]
     Active Substance: ASPIRIN DL-LYSINE
     Route: 030
     Dates: start: 20210711, end: 20210711
  101. LYSINE ACETYLSALICYLATE [Concomitant]
     Active Substance: ASPIRIN DL-LYSINE
     Route: 042
     Dates: start: 20210731, end: 20210802

REACTIONS (2)
  - Acquired tracheo-oesophageal fistula [Not Recovered/Not Resolved]
  - Pneumonia aspiration [Recovered/Resolved]

NARRATIVE: CASE EVENT DATE: 20210613
